FAERS Safety Report 15979640 (Version 1)
Quarter: 2019Q1

REPORT INFORMATION
  Report Type: Spontaneous
  Country: US (occurrence: US)
  Receive Date: 20190219
  Receipt Date: 20190219
  Transmission Date: 20190418
  Serious: No
  Sender: FDA-Public Use
  Company Number: US-PFIZER INC-2019066501

PATIENT
  Age: 20 Year
  Sex: Male
  Weight: 172.36 kg

DRUGS (1)
  1. INFANTS ADVIL CONCENTRATED DROPS [Suspect]
     Active Substance: IBUPROFEN
     Dosage: 30 ML, UNK

REACTIONS (3)
  - Oral pruritus [Not Recovered/Not Resolved]
  - Product use issue [Unknown]
  - Lip pruritus [Not Recovered/Not Resolved]
